FAERS Safety Report 25475283 (Version 1)
Quarter: 2025Q2

REPORT INFORMATION
  Report Type: Spontaneous
  Country: CA (occurrence: CA)
  Receive Date: 20250624
  Receipt Date: 20250624
  Transmission Date: 20250717
  Serious: Yes (Death, Other)
  Sender: B. BRAUN MEDICAL INC.
  Company Number: None

PATIENT
  Age: 76 Year
  Sex: Female

DRUGS (4)
  1. HEPARIN SODIUM [Suspect]
     Active Substance: HEPARIN SODIUM
     Indication: Product used for unknown indication
  2. HEPARIN SODIUM [Suspect]
     Active Substance: HEPARIN SODIUM
  3. ENOXAPARIN [Suspect]
     Active Substance: ENOXAPARIN
     Indication: Product used for unknown indication
  4. WARFARIN [Suspect]
     Active Substance: WARFARIN
     Indication: Product used for unknown indication
     Dosage: TABLETS. 4.0 MG ONCE DAILY

REACTIONS (6)
  - Haemoglobin decreased [Fatal]
  - Shock haemorrhagic [Fatal]
  - Hypovolaemic shock [Fatal]
  - Retroperitoneal haemorrhage [Fatal]
  - Hypertension [Fatal]
  - Hypotension [Fatal]
